FAERS Safety Report 7267010-0 (Version None)
Quarter: 2011Q1

REPORT INFORMATION
  Report Type: 
  Country: None (occurrence: None)
  Receive Date: 20110201
  Receipt Date: 20110126
  Transmission Date: 20110831
  Serious: No
  Sender: FDA-Public Use
  Company Number: US-JNJFOC-20110107838

PATIENT
  Sex: Male
  Weight: 81.65 kg

DRUGS (1)
  1. DURAGESIC-50 [Suspect]
     Indication: FIBROMYALGIA
     Route: 062

REACTIONS (7)
  - PRODUCT QUALITY ISSUE [None]
  - ANXIETY [None]
  - MALAISE [None]
  - PALPITATIONS [None]
  - DRUG DISPENSING ERROR [None]
  - EXPIRED DRUG ADMINISTERED [None]
  - INSOMNIA [None]
